FAERS Safety Report 15682790 (Version 1)
Quarter: 2018Q4

REPORT INFORMATION
  Report Type: Report from Study
  Country: ES (occurrence: ES)
  Receive Date: 20181203
  Receipt Date: 20181203
  Transmission Date: 20190205
  Serious: Yes (Hospitalization)
  Sender: FDA-Public Use
  Company Number: ES-BAYER-2018-217928

PATIENT
  Age: 32 Year
  Sex: Female

DRUGS (6)
  1. LORNOXICAM [Interacting]
     Active Substance: LORNOXICAM
     Indication: ARTHRALGIA
     Dosage: 16 MG, UNK
     Route: 048
     Dates: start: 20180216, end: 20180217
  2. HIDROCORTISONA [HYDROCORTISONE] [Concomitant]
     Dosage: 30 MG, UNK
     Route: 048
     Dates: start: 20171124
  3. CETIRIZINA [CETIRIZINE] [Concomitant]
     Dosage: 10 MG, UNK
     Route: 048
     Dates: start: 20171222, end: 20180217
  4. LEVOTIROXINA SODICA [Concomitant]
     Active Substance: LEVOTHYROXINE SODIUM
     Dosage: 150 ?G, UNK
     Route: 048
     Dates: start: 20111128
  5. NAPROXENO (2002A) [Suspect]
     Active Substance: NAPROXEN
     Indication: ARTHRALGIA
     Dosage: 1 G, QD
     Route: 048
     Dates: start: 20180214, end: 20180217
  6. FLUOXETINA [FLUOXETINE] [Interacting]
     Active Substance: FLUOXETINE HYDROCHLORIDE
     Dosage: 20 MG, UNK
     Route: 048
     Dates: start: 20120607, end: 20180217

REACTIONS (1)
  - Acute kidney injury [Recovered/Resolved]

NARRATIVE: CASE EVENT DATE: 20180217
